FAERS Safety Report 24388435 (Version 1)
Quarter: 2024Q4

REPORT INFORMATION
  Report Type: Spontaneous
  Country: AU (occurrence: AU)
  Receive Date: 20241002
  Receipt Date: 20241002
  Transmission Date: 20250114
  Serious: Yes (Other)
  Sender: ANI
  Company Number: AU-ANIPHARMA-2024-AU-000369

PATIENT
  Age: 51 Year
  Sex: Male

DRUGS (21)
  1. CANDESARTAN [Suspect]
     Active Substance: CANDESARTAN
     Indication: Product used for unknown indication
     Route: 048
  2. FUROSEMIDE [Suspect]
     Active Substance: FUROSEMIDE
  3. HYDRALAZINE HYDROCHLORIDE [Suspect]
     Active Substance: HYDRALAZINE HYDROCHLORIDE
  4. PANTOPRAZOLE SODIUM [Suspect]
     Active Substance: PANTOPRAZOLE SODIUM
  5. PRAVASTATIN SODIUM [Suspect]
     Active Substance: PRAVASTATIN SODIUM
  6. SULFAMETHOXAZOLE [Suspect]
     Active Substance: SULFAMETHOXAZOLE
  7. TACROLIMUS [Suspect]
     Active Substance: TACROLIMUS
  8. VORICONAZOLE [Suspect]
     Active Substance: VORICONAZOLE
  9. INSULIN ASPART [Suspect]
     Active Substance: INSULIN ASPART
  10. SEMAGLUTIDE [Suspect]
     Active Substance: SEMAGLUTIDE
  11. CHOLECALCIFEROL [Suspect]
     Active Substance: CHOLECALCIFEROL
  12. CARVEDILOL [Suspect]
     Active Substance: CARVEDILOL
  13. EVEROLIMUS [Suspect]
     Active Substance: EVEROLIMUS
  14. NICOTINAMIDE [Suspect]
     Active Substance: NIACINAMIDE
  15. COTRIMOXAZOLE [Suspect]
     Active Substance: SULFAMETHOXAZOLE\TRIMETHOPRIM
  16. NITAZOXANIDE [Suspect]
     Active Substance: NITAZOXANIDE
  17. ALLOPURINOL [Suspect]
     Active Substance: ALLOPURINOL
  18. AMLODIPINE [Suspect]
     Active Substance: AMLODIPINE BESYLATE
  19. CALCITRIOL [Suspect]
     Active Substance: CALCITRIOL
  20. CEFTRIAXONE SODIUM [Suspect]
     Active Substance: CEFTRIAXONE SODIUM
  21. CLINDAMYCIN [Suspect]
     Active Substance: CLINDAMYCIN

REACTIONS (8)
  - Pneumocystis jirovecii infection [Unknown]
  - Coma scale abnormal [Unknown]
  - Disease progression [Unknown]
  - Microsporidia infection [Unknown]
  - Chest pain [Unknown]
  - Diarrhoea [Unknown]
  - Dyspnoea [Unknown]
  - Therapeutic product effect incomplete [Unknown]
